FAERS Safety Report 17524749 (Version 2)
Quarter: 2020Q1

REPORT INFORMATION
  Report Type: Spontaneous
  Country: IT (occurrence: IT)
  Receive Date: 20200311
  Receipt Date: 20200318
  Transmission Date: 20200409
  Serious: Yes (Death, Other)
  Sender: FDA-Public Use
  Company Number: IT-AMGEN-ITASP2020038265

PATIENT
  Age: 62 Year
  Sex: Male

DRUGS (4)
  1. ZYLORIC [Suspect]
     Active Substance: ALLOPURINOL
     Indication: GOUT
     Dosage: 300 MILLIGRAM, QD
     Route: 048
     Dates: start: 20190901, end: 20200209
  2. KYPROLIS [Suspect]
     Active Substance: CARFILZOMIB
     Indication: PLASMA CELL MYELOMA
     Dosage: 1200 MILLIGRAM, CYCLICAL
     Route: 042
     Dates: start: 20191015, end: 20200131
  3. LENALIDOMIDE [Suspect]
     Active Substance: LENALIDOMIDE
     Indication: PLASMA CELL MYELOMA
     Dosage: 10 MILLIGRAM, QD
     Route: 048
     Dates: start: 20191104, end: 20200131
  4. VFEND [Suspect]
     Active Substance: VORICONAZOLE
     Indication: ASPERGILLUS INFECTION
     Dosage: 200 MILLIGRAM, QD
     Route: 048
     Dates: start: 20200115, end: 20200209

REACTIONS (1)
  - Toxic epidermal necrolysis [Fatal]

NARRATIVE: CASE EVENT DATE: 20200209
